FAERS Safety Report 14277853 (Version 1)
Quarter: 2017Q4

REPORT INFORMATION
  Report Type: Spontaneous
  Country: US (occurrence: US)
  Receive Date: 20171211
  Receipt Date: 20171211
  Transmission Date: 20180321
  Serious: Yes (Other)
  Sender: FDA-Public Use
  Company Number: US-OTSUKA-2017_025666

PATIENT
  Sex: Male

DRUGS (1)
  1. ABILIFY [Suspect]
     Active Substance: ARIPIPRAZOLE
     Indication: DEPRESSION
     Dosage: 15 MG, UNK
     Route: 065
     Dates: start: 2003, end: 2013

REACTIONS (8)
  - Mental disorder [Not Recovered/Not Resolved]
  - Gambling [Unknown]
  - Suicidal ideation [Unknown]
  - Brain injury [Not Recovered/Not Resolved]
  - Impulsive behaviour [Unknown]
  - Emotional distress [Not Recovered/Not Resolved]
  - Suicide attempt [Unknown]
  - Obsessive-compulsive disorder [Unknown]
